FAERS Safety Report 20749727 (Version 1)
Quarter: 2022Q2

REPORT INFORMATION
  Report Type: Spontaneous
  Country: US (occurrence: US)
  Receive Date: 20220426
  Receipt Date: 20220426
  Transmission Date: 20220721
  Serious: Yes (Other)
  Sender: FDA-Public Use
  Company Number: US-GSKCCFUS-Case-01356338_AE-78555

PATIENT
  Age: 75 Year
  Sex: Male

DRUGS (1)
  1. NUCALA [Suspect]
     Active Substance: MEPOLIZUMAB
     Indication: Product used for unknown indication
     Dosage: 100 MG, Z

REACTIONS (9)
  - Immobile [Recovering/Resolving]
  - Nausea [Recovering/Resolving]
  - Haemoptysis [Recovering/Resolving]
  - Migraine [Recovering/Resolving]
  - Musculoskeletal stiffness [Recovering/Resolving]
  - Injection site pain [Recovering/Resolving]
  - Back pain [Recovering/Resolving]
  - Oropharyngeal pain [Recovering/Resolving]
  - Headache [Recovering/Resolving]

NARRATIVE: CASE EVENT DATE: 20220415
